FAERS Safety Report 7509789-6 (Version None)
Quarter: 2011Q2

REPORT INFORMATION
  Report Type: 
  Country: None (occurrence: None)
  Receive Date: 20110527
  Receipt Date: 20110513
  Transmission Date: 20111010
  Serious: Yes (Other)
  Sender: FDA-Public Use
  Company Number: B0721026A

PATIENT
  Age: 53 Year
  Sex: Female
  Weight: 121.56 kg

DRUGS (5)
  1. ORLISTAT [Suspect]
     Dates: start: 20110413
  2. FUSIDIC ACID [Concomitant]
     Dates: start: 20110318, end: 20110319
  3. FLUOXETINE [Concomitant]
     Dates: start: 20110207, end: 20110307
  4. PROPRANOLOL [Concomitant]
     Dates: start: 20110207, end: 20110307
  5. ERYTHROMYCIN [Concomitant]
     Dates: start: 20110207, end: 20110214

REACTIONS (1)
  - HEADACHE [None]
